FAERS Safety Report 23162571 (Version 3)
Quarter: 2023Q4

REPORT INFORMATION
  Report Type: Spontaneous
  Country: DE (occurrence: DE)
  Receive Date: 20231109
  Receipt Date: 20231225
  Transmission Date: 20240110
  Serious: Yes (Other)
  Sender: FDA-Public Use
  Company Number: DE-ROCHE-3421337

PATIENT
  Age: 60 Year
  Sex: Female
  Weight: 50.4 kg

DRUGS (25)
  1. DOCETAXEL [Suspect]
     Active Substance: DOCETAXEL\DOCETAXEL ANHYDROUS
     Indication: Breast cancer
     Dosage: 116 MILLIGRAM (LAST DOSE PRIOR EVENT: 116 MG)
     Route: 065
     Dates: start: 20230817, end: 20230817
  2. DOCETAXEL [Suspect]
     Active Substance: DOCETAXEL\DOCETAXEL ANHYDROUS
     Dosage: 118 MILLIGRAM, ON 07/SEP/2023, SHE RECEIVED MOST RECENT DOSE OF DOCETAXEL
     Route: 065
     Dates: start: 20230928
  3. CARBOPLATIN [Suspect]
     Active Substance: CARBOPLATIN
     Indication: Breast cancer
     Dosage: 640 MILLIGRAM (ON 28/SEP/2023, SHE RECEIVED MOST RECENT DOSE OF CARBOPLATIN 640 MG)
     Route: 065
     Dates: start: 20230817
  4. CARBOPLATIN [Suspect]
     Active Substance: CARBOPLATIN
     Dosage: 690 MILLIGRAM
     Route: 065
     Dates: start: 20230907
  5. PERJETA [Suspect]
     Active Substance: PERTUZUMAB
     Indication: Breast cancer
     Dosage: 840 MILLIGRAM (LAST DOSE PRIOR TO EVENT :840MG)
     Route: 065
     Dates: start: 20230817
  6. PERJETA [Suspect]
     Active Substance: PERTUZUMAB
     Dosage: 420 MILLIGRAM (ON 07/SEP/2023, SHE RECEIVED MOST RECENT DOSE OF PERTUZUMAB 420 MG)
     Route: 065
     Dates: start: 20230928
  7. TRASTUZUMAB [Suspect]
     Active Substance: TRASTUZUMAB
     Indication: Breast cancer
     Dosage: 399 MILLIGRAM (LAST DOSE PRIOR TO EVENT 399MG)
     Route: 065
     Dates: start: 20230817, end: 20230817
  8. TRASTUZUMAB [Suspect]
     Active Substance: TRASTUZUMAB
     Dosage: 315 MILLIGRAM (ON 28/SEP/2023, SHE RECEIVED MOST RECENT DOSE OF TRASTUZMAB 315 MG)
     Route: 065
     Dates: start: 20230928
  9. AKYNZEO [Concomitant]
     Indication: Product used for unknown indication
     Dosage: 300 MILLIGRAM
     Route: 065
     Dates: start: 20230817
  10. DIMETHINDENE MALEATE [Concomitant]
     Active Substance: DIMETHINDENE MALEATE
     Indication: Product used for unknown indication
     Dosage: 4 MILLIGRAM
     Route: 065
     Dates: start: 20230817
  11. ENOXAPARIN SODIUM [Concomitant]
     Active Substance: ENOXAPARIN SODIUM
     Indication: Product used for unknown indication
     Dosage: UNK , ONCE A DAY
     Route: 065
     Dates: start: 20230817
  12. DEXAMETHASONE [Concomitant]
     Active Substance: DEXAMETHASONE
     Indication: Product used for unknown indication
     Dosage: 8 MILLIGRAM
     Route: 065
     Dates: start: 20230817
  13. DEXAMETHASONE [Concomitant]
     Active Substance: DEXAMETHASONE
     Dosage: UNK
     Route: 065
     Dates: start: 20230818
  14. DEXAMETHASONE [Concomitant]
     Active Substance: DEXAMETHASONE
     Dosage: 8 MILLIGRAM
     Route: 065
     Dates: start: 20230819
  15. DEXAMETHASONE [Concomitant]
     Active Substance: DEXAMETHASONE
     Dosage: 16 MILLIGRAM
     Route: 065
     Dates: start: 20230906
  16. DEXAMETHASONE [Concomitant]
     Active Substance: DEXAMETHASONE
     Dosage: 8 MILLIGRAM
     Route: 065
     Dates: start: 20230817
  17. LOPERAMIDE [Concomitant]
     Active Substance: LOPERAMIDE
     Indication: Product used for unknown indication
     Dosage: 2 MILLIGRAM
     Route: 065
     Dates: start: 20230821, end: 20230827
  18. LOPERAMIDE [Concomitant]
     Active Substance: LOPERAMIDE
     Dosage: 4 MILLIGRAM
     Route: 065
     Dates: start: 20230910, end: 20230929
  19. LOPERAMIDE [Concomitant]
     Active Substance: LOPERAMIDE
     Dosage: 4 MILLIGRAM
     Route: 065
     Dates: start: 20231001
  20. NEULASTA [Concomitant]
     Active Substance: PEGFILGRASTIM
     Indication: Product used for unknown indication
     Dosage: 6 MILLIGRAM
     Route: 065
     Dates: start: 20230818
  21. VITAMIN D3 [Concomitant]
     Active Substance: CHOLECALCIFEROL
     Indication: Product used for unknown indication
     Dosage: 3000 IU INTERNATIONAL UNIT(S), EVERY WEEK
     Route: 065
     Dates: start: 20230908
  22. Hysan [Concomitant]
     Indication: Product used for unknown indication
     Dosage: UNK (DOSE: 1 HUB, 0.33 DAY)
     Route: 065
     Dates: start: 20230908
  23. Bepanthen [Concomitant]
     Indication: Product used for unknown indication
     Dosage: UNK, ONCE A DAY (DOSE: 1 CM)
     Route: 065
     Dates: start: 20230908
  24. MCP [Concomitant]
     Active Substance: METOCLOPRAMIDE HYDROCHLORIDE
     Indication: Product used for unknown indication
     Dosage: 10 MILLIGRAM, ONCE A DAY
     Route: 065
     Dates: start: 20231007
  25. ALLIUM CEPA [Concomitant]
     Active Substance: ONION
     Indication: Product used for unknown indication
     Dosage: UNK (5 GLOBULES, 0.33 DAY)
     Route: 065
     Dates: start: 20230908

REACTIONS (16)
  - Polyneuropathy [Recovered/Resolved]
  - Dysgeusia [Not Recovered/Not Resolved]
  - Alopecia [Not Recovered/Not Resolved]
  - Dry skin [Not Recovered/Not Resolved]
  - Rash [Not Recovered/Not Resolved]
  - Dyspepsia [Recovered/Resolved]
  - Asthenia [Recovered/Resolved]
  - Oedema peripheral [Recovered/Resolved]
  - Epistaxis [Recovered/Resolved]
  - Diarrhoea [Recovered/Resolved]
  - Decreased appetite [Not Recovered/Not Resolved]
  - Flushing [Recovered/Resolved]
  - Nausea [Recovered/Resolved]
  - Vomiting [Recovered/Resolved]
  - Anal haemorrhage [Not Recovered/Not Resolved]
  - Nail disorder [Not Recovered/Not Resolved]

NARRATIVE: CASE EVENT DATE: 20230818
